FAERS Safety Report 25841320 (Version 1)
Quarter: 2025Q3

REPORT INFORMATION
  Report Type: Spontaneous
  Country: CN (occurrence: CN)
  Receive Date: 20250924
  Receipt Date: 20250924
  Transmission Date: 20251020
  Serious: Yes (Life-Threatening, Hospitalization)
  Sender: PFIZER
  Company Number: CN-PFIZER INC-PV202500113996

PATIENT
  Age: 62 Year
  Sex: Male

DRUGS (2)
  1. ZYVOX [Suspect]
     Active Substance: LINEZOLID
     Indication: Pneumonia
     Dosage: 0.6 G, 2X/DAY
     Route: 041
     Dates: start: 20250726, end: 20250916
  2. ZYVOX [Suspect]
     Active Substance: LINEZOLID
     Indication: Abdominal infection

REACTIONS (1)
  - Lactic acidosis [Recovering/Resolving]

NARRATIVE: CASE EVENT DATE: 20250902
